FAERS Safety Report 13164120 (Version 4)
Quarter: 2018Q1

REPORT INFORMATION
  Report Type: Report from Study
  Country: US (occurrence: US)
  Receive Date: 20170130
  Receipt Date: 20180202
  Transmission Date: 20180508
  Serious: Yes (Hospitalization)
  Sender: FDA-Public Use
  Company Number: US-ALEXION PHARMACEUTICALS INC.-A201700627

PATIENT
  Age: 22 Year
  Sex: Male

DRUGS (40)
  1. RAMELTEON [Concomitant]
     Active Substance: RAMELTEON
     Indication: INSOMNIA
     Dosage: 8 MG, PRN
     Route: 048
     Dates: start: 20161226, end: 20170101
  2. MAGNESIUM OXIDE. [Concomitant]
     Active Substance: MAGNESIUM OXIDE
     Indication: BLOOD MAGNESIUM DECREASED
     Dosage: 800 MG, SINGLE
     Route: 048
     Dates: start: 20161228, end: 20161228
  3. DINITRATE [Concomitant]
     Indication: PRODUCT USED FOR UNKNOWN INDICATION
     Dosage: UNK
     Route: 065
  4. ZOFRAN [Concomitant]
     Active Substance: ONDANSETRON HYDROCHLORIDE
     Dosage: 4 MG, SINGLE
     Route: 042
     Dates: start: 20161225, end: 20161225
  5. SENOKOT-S [Concomitant]
     Active Substance: DOCUSATE SODIUM\SENNOSIDES
     Indication: CONSTIPATION
     Dosage: UNK MG, BID
     Route: 048
     Dates: start: 20161225, end: 20170101
  6. NALOXONE [Concomitant]
     Active Substance: NALOXONE
     Indication: DRUG WITHDRAWAL MAINTENANCE THERAPY
     Dosage: 0.2 MG, SINGLE
     Route: 058
     Dates: start: 20161230, end: 20170101
  7. HYDROCORTISONE. [Concomitant]
     Active Substance: HYDROCORTISONE
     Indication: PRODUCT USED FOR UNKNOWN INDICATION
     Dosage: 25 MG, BID
     Route: 048
     Dates: start: 20161230, end: 20161230
  8. HYDROCORTISONE. [Concomitant]
     Active Substance: HYDROCORTISONE
     Dosage: 25 MG, QD
     Route: 048
  9. SOLIRIS [Suspect]
     Active Substance: ECULIZUMAB
     Indication: PAROXYSMAL NOCTURNAL HAEMOGLOBINURIA
     Dosage: 1200 MG, Q2W
     Route: 042
     Dates: start: 20151215
  10. ACETAMINOPHEN. [Concomitant]
     Active Substance: ACETAMINOPHEN
     Indication: PRODUCT USED FOR UNKNOWN INDICATION
     Dosage: PRN650 MG, Q6H PRN
     Route: 048
     Dates: start: 20161225, end: 20161230
  11. SOLU-CORTEF [Concomitant]
     Active Substance: HYDROCORTISONE SODIUM SUCCINATE
     Dosage: 25 MG, SINGLE
     Route: 042
     Dates: start: 20161231, end: 20161231
  12. HYDROCODONE BITARTRATE AND ACETAMINOPHEN [Concomitant]
     Active Substance: ACETAMINOPHEN\HYDROCODONE BITARTRATE
     Dosage: 5-325 MG, Q4H PRN
     Route: 048
     Dates: start: 20161231, end: 20170101
  13. LOVENOX [Concomitant]
     Active Substance: ENOXAPARIN SODIUM
     Dosage: 40 MG, QD
     Route: 058
     Dates: start: 20161231, end: 20170101
  14. HYDROCORTISONE SODIUM SUCCINATE [Concomitant]
     Active Substance: HYDROCORTISONE SODIUM SUCCINATE
     Dosage: 25 MG, BID
     Route: 042
     Dates: start: 20161230, end: 20161230
  15. HYDROCODONE BITARTRATE AND ACETAMINOPHEN [Concomitant]
     Active Substance: ACETAMINOPHEN\HYDROCODONE BITARTRATE
     Indication: PAIN
     Dosage: 5-325 MG, Q6H PRN
     Route: 048
     Dates: start: 20161230, end: 20161231
  16. FLUDROCORTISONE [Concomitant]
     Active Substance: FLUDROCORTISONE
     Indication: GLOMERULONEPHRITIS MINIMAL LESION
     Dosage: .2 MG, QD
     Route: 048
  17. RITUXAN [Concomitant]
     Active Substance: RITUXIMAB
     Indication: GLOMERULONEPHRITIS MINIMAL LESION
     Dosage: UNK, SINGLE
     Route: 065
  18. ZINC. [Concomitant]
     Active Substance: ZINC
     Indication: PRODUCT USED FOR UNKNOWN INDICATION
     Dosage: UNK
     Route: 065
  19. PREDNISONE. [Concomitant]
     Active Substance: PREDNISONE
     Indication: GLOMERULONEPHRITIS MINIMAL LESION
     Dosage: 30 MG, QD
     Route: 048
     Dates: start: 20161225, end: 20170101
  20. PREDNISONE. [Concomitant]
     Active Substance: PREDNISONE
     Dosage: 60 MG, SINGLE
     Route: 048
     Dates: start: 20161225, end: 20161225
  21. ZOFRAN [Concomitant]
     Active Substance: ONDANSETRON HYDROCHLORIDE
     Indication: NAUSEA
     Dosage: 4 MG, TID
     Route: 048
     Dates: start: 20161225, end: 20170101
  22. ZOFRAN [Concomitant]
     Active Substance: ONDANSETRON HYDROCHLORIDE
     Dosage: 4 ML, TID
     Route: 042
     Dates: start: 20161225, end: 20161227
  23. MAGNESIUM SULFATE. [Concomitant]
     Active Substance: MAGNESIUM SULFATE
     Indication: BLOOD MAGNESIUM DECREASED
     Dosage: 2 G, SINGLE
     Route: 042
     Dates: start: 20161225, end: 20161225
  24. MAGNESIUM SULFATE. [Concomitant]
     Active Substance: MAGNESIUM SULFATE
     Dosage: 2 G, SINGLE
     Route: 042
     Dates: start: 20161228, end: 20161228
  25. PHENERGAN [Concomitant]
     Active Substance: PROMETHAZINE HYDROCHLORIDE
     Indication: NAUSEA
     Dosage: 12.5 MG, Q6H PRN
     Route: 042
     Dates: start: 20161225, end: 20161227
  26. FUROSEMIDE. [Concomitant]
     Active Substance: FUROSEMIDE
     Indication: FLUID OVERLOAD
     Dosage: 40 MG, SINGLE
     Route: 042
     Dates: start: 20161225, end: 20161225
  27. SOLU-CORTEF [Concomitant]
     Active Substance: HYDROCORTISONE SODIUM SUCCINATE
     Indication: PRODUCT USED FOR UNKNOWN INDICATION
     Dosage: 50 MG, TID
     Route: 042
     Dates: start: 20161226, end: 20161229
  28. TOLVAPTAN [Concomitant]
     Active Substance: TOLVAPTAN
     Indication: HYPONATRAEMIA
     Dosage: UNK MG, SINGLE
     Route: 048
     Dates: start: 20161230, end: 20161230
  29. HYDRALAZINE [Concomitant]
     Active Substance: HYDRALAZINE HYDROCHLORIDE
     Indication: PRODUCT USED FOR UNKNOWN INDICATION
     Dosage: UNK
     Route: 065
  30. BYSTOLIC [Concomitant]
     Active Substance: NEBIVOLOL HYDROCHLORIDE
     Indication: PRODUCT USED FOR UNKNOWN INDICATION
     Dosage: UNK
     Route: 065
  31. SOLU-CORTEF [Concomitant]
     Active Substance: HYDROCORTISONE SODIUM SUCCINATE
     Dosage: 25 MG, SINGLE
     Route: 042
     Dates: start: 20161230, end: 20161230
  32. HYDROCORTISONE SODIUM SUCCINATE [Concomitant]
     Active Substance: HYDROCORTISONE SODIUM SUCCINATE
     Indication: PRODUCT USED FOR UNKNOWN INDICATION
     Dosage: 50 MG, BID
     Route: 042
     Dates: start: 20161229, end: 20161230
  33. FLUDROCORTISONE [Concomitant]
     Active Substance: FLUDROCORTISONE
     Indication: ADDISON^S DISEASE
  34. SYNTHROID [Concomitant]
     Active Substance: LEVOTHYROXINE SODIUM
     Dosage: 75 ?G, QD
     Route: 048
  35. DOXAZOSIN [Concomitant]
     Active Substance: DOXAZOSIN\DOXAZOSIN MESYLATE
     Indication: PRODUCT USED FOR UNKNOWN INDICATION
     Dosage: UNK
     Route: 065
  36. ZOFRAN [Concomitant]
     Active Substance: ONDANSETRON HYDROCHLORIDE
     Dosage: 4 MG, Q8H PRN
     Route: 048
     Dates: start: 20161227, end: 20161227
  37. LOVENOX [Concomitant]
     Active Substance: ENOXAPARIN SODIUM
     Indication: THROMBOSIS PROPHYLAXIS
     Dosage: 40 MG, QD
     Route: 058
     Dates: start: 20161225, end: 20161226
  38. PHENERGAN [Concomitant]
     Active Substance: PROMETHAZINE HYDROCHLORIDE
     Dosage: 12.5 MG, Q6H PRN
     Route: 048
     Dates: start: 20161225, end: 20161227
  39. SYNTHROID [Concomitant]
     Active Substance: LEVOTHYROXINE SODIUM
     Indication: HYPOTHYROIDISM
     Dosage: UNK
     Route: 065
  40. PHENERGAN [Concomitant]
     Active Substance: PROMETHAZINE HYDROCHLORIDE
     Dosage: 12.5 MG, Q6H PRN
     Route: 054
     Dates: start: 20161225, end: 20161227

REACTIONS (1)
  - Hyponatraemia [Recovered/Resolved]

NARRATIVE: CASE EVENT DATE: 20161224
